FAERS Safety Report 16369514 (Version 1)
Quarter: 2019Q2

REPORT INFORMATION
  Report Type: Spontaneous
  Country: CN (occurrence: CN)
  Receive Date: 20190530
  Receipt Date: 20190530
  Transmission Date: 20190711
  Serious: Yes (Other)
  Sender: FDA-Public Use
  Company Number: CN-ROCHE-2324351

PATIENT
  Age: 80 Year
  Sex: Female

DRUGS (4)
  1. HERCEPTIN [Suspect]
     Active Substance: TRASTUZUMAB
     Indication: BREAST CANCER
     Route: 065
     Dates: start: 201510
  2. TEGAFUR [Concomitant]
     Active Substance: TEGAFUR
  3. PACLITAXEL. [Concomitant]
     Active Substance: PACLITAXEL
  4. OTERACIL POTASSIUM [Concomitant]
     Active Substance: OTERACIL POTASSIUM

REACTIONS (1)
  - Breast cancer recurrent [Unknown]
